FAERS Safety Report 8888874 (Version 1)
Quarter: 2012Q4

REPORT INFORMATION
  Report Type: 
  Country: JP (occurrence: JP)
  Receive Date: 20121106
  Receipt Date: 20121106
  Transmission Date: 20130627
  Serious: Yes (Other)
  Sender: FDA-Public Use
  Company Number: JP-009507513-1211JPN000591

PATIENT
  Age: 62 Year
  Sex: Female
  Weight: 61 kg

DRUGS (8)
  1. REBETOL CAPSULES 200MG [Suspect]
     Indication: HEPATITIS C
     Dosage: 200 mg in morning, 400 mg in evening, bid
     Route: 048
     Dates: start: 20111019, end: 20120116
  2. FERON [Suspect]
     Indication: HEPATITIS C
     Dosage: 6 million IU, qd
     Route: 041
     Dates: start: 20111019, end: 20111021
  3. FERON [Suspect]
     Dosage: 3 million IU, qd
     Route: 041
     Dates: start: 20111022, end: 20111023
  4. FERON [Suspect]
     Dosage: 6 million IU, qd
     Route: 041
     Dates: start: 20111024, end: 20111026
  5. FERON [Suspect]
     Dosage: 3 million IU, qd
     Route: 041
     Dates: start: 20111027, end: 20111027
  6. FERON [Suspect]
     Dosage: 6 million IU, qd
     Route: 041
     Dates: start: 20111028, end: 20111115
  7. FERON [Suspect]
     Dosage: 6 million IU, tiw
     Route: 041
     Dates: start: 20111116, end: 20120116
  8. PROMAC (POLAPREZINC) [Concomitant]
     Indication: PROPHYLAXIS AGAINST GASTROINTESTINAL ULCER
     Dosage: 150 mg, divided dose, frequency unknown
     Route: 048
     Dates: start: 20111019

REACTIONS (3)
  - Neutrophil count decreased [Recovering/Resolving]
  - Blood urine present [Recovering/Resolving]
  - Pruritus [Recovering/Resolving]
